FAERS Safety Report 8655744 (Version 2)
Quarter: 2012Q4

REPORT INFORMATION
  Report Type: 
  Country: US (occurrence: US)
  Receive Date: 20120709
  Receipt Date: 20120904
  Transmission Date: 20130627
  Serious: No
  Sender: FDA-Public Use
  Company Number: US-AMGEN-USASP2012035097

PATIENT
  Age: 69 Year
  Sex: Male
  Weight: 90.7 kg

DRUGS (6)
  1. ENBREL [Suspect]
     Indication: RHEUMATOID ARTHRITIS
     Dosage: 50 mg, 2 times/wk
     Route: 058
     Dates: start: 20120423
  2. METHOTREXATE [Concomitant]
     Dosage: 20 mg, qwk
  3. FOLIC ACID [Concomitant]
     Dosage: 1 mg, qd
  4. PLAQUENIL                          /00072602/ [Concomitant]
     Dosage: 200 mg, bid
  5. VITAMIN D /00107901/ [Concomitant]
     Dosage: UNK
  6. PREDNISONE [Concomitant]
     Dosage: 5 mg, every other day

REACTIONS (13)
  - Injection site extravasation [Unknown]
  - Pain in extremity [Unknown]
  - Sinus disorder [Unknown]
  - Insomnia [Unknown]
  - Sjogren^s syndrome [Unknown]
  - Temperature intolerance [Unknown]
  - Weight increased [Unknown]
  - Headache [Unknown]
  - Rheumatoid arthritis [Unknown]
  - Local reaction [Recovered/Resolved]
  - Injection site erythema [Recovered/Resolved]
  - Injection site pruritus [Recovered/Resolved]
  - Injection site reaction [Unknown]
